FAERS Safety Report 6133014-4 (Version None)
Quarter: 2009Q1

REPORT INFORMATION
  Report Type: 
  Country: None (occurrence: None)
  Receive Date: 20090326
  Receipt Date: 20090313
  Transmission Date: 20090719
  Serious: Yes (Other)
  Sender: FDA-Public Use
  Company Number: BR-PFIZER INC-2009183806

PATIENT

DRUGS (3)
  1. GEODON [Suspect]
     Indication: SCHIZOPHRENIA
     Dosage: UNK
     Route: 048
  2. CLOZAPINE [Suspect]
     Indication: SCHIZOPHRENIA
  3. TORLOS [Concomitant]
     Dosage: UNK

REACTIONS (7)
  - AMNESIA [None]
  - BLOOD PROLACTIN INCREASED [None]
  - DIABETES MELLITUS [None]
  - INFREQUENT BOWEL MOVEMENTS [None]
  - SALIVARY HYPERSECRETION [None]
  - SUICIDE ATTEMPT [None]
  - URINARY TRACT DISORDER [None]
